FAERS Safety Report 8077252-2 (Version None)
Quarter: 2012Q1

REPORT INFORMATION
  Report Type: 
  Country: None (occurrence: None)
  Receive Date: 20120127
  Receipt Date: 20120120
  Transmission Date: 20120608
  Serious: Yes (Other)
  Sender: FDA-Public Use
  Company Number: AU-JNJFOC-20110509941

PATIENT
  Sex: Female

DRUGS (7)
  1. STELARA [Suspect]
     Indication: PSORIASIS
     Route: 058
     Dates: start: 20100513
  2. STELARA [Suspect]
     Route: 058
     Dates: start: 20110223
  3. STELARA [Suspect]
     Route: 058
     Dates: start: 20110517
  4. LEVOTHYROXINE SODIUM [Concomitant]
  5. STELARA [Suspect]
     Route: 058
     Dates: start: 20100610
  6. STELARA [Suspect]
     Route: 058
     Dates: start: 20101126
  7. STELARA [Suspect]
     Route: 058
     Dates: start: 20100908

REACTIONS (2)
  - FOOD ALLERGY [None]
  - DIABETES MELLITUS [None]
